FAERS Safety Report 7162668-9 (Version None)
Quarter: 2010Q4

REPORT INFORMATION
  Report Type: 
  Country: None (occurrence: None)
  Receive Date: 20101215
  Receipt Date: 20091209
  Transmission Date: 20110411
  Serious: Yes (Other)
  Sender: FDA-Public Use
  Company Number: GR-PFIZER INC-2009307590

PATIENT
  Sex: Male

DRUGS (4)
  1. LYRICA [Suspect]
     Dosage: UNK
     Route: 048
     Dates: start: 20090901
  2. LAMICTAL [Concomitant]
     Dosage: UNK
     Route: 048
     Dates: start: 20090901
  3. ZYPREXA [Concomitant]
     Dosage: UNK
     Route: 048
     Dates: start: 20090901
  4. ATARAX [Concomitant]
     Dosage: UNK
     Route: 048
     Dates: start: 20090901

REACTIONS (1)
  - HYPONATRAEMIA [None]
